FAERS Safety Report 5797976-7 (Version None)
Quarter: 2008Q3

REPORT INFORMATION
  Report Type: 
  Country: None (occurrence: None)
  Receive Date: 20080702
  Receipt Date: 20080619
  Transmission Date: 20090109
  Serious: Yes (Hospitalization, Disabling)
  Sender: FDA-Public Use
  Company Number: JP-ABBOTT-08P-087-0456432-00

PATIENT
  Sex: Female

DRUGS (4)
  1. LEUPROLIDE ACETATE [Suspect]
     Indication: UTERINE LEIOMYOMA
     Route: 058
     Dates: start: 20010709, end: 20011130
  2. LEUPROLIDE ACETATE [Suspect]
     Route: 058
     Dates: start: 20040218, end: 20040714
  3. LEUPROLIDE ACETATE [Suspect]
     Route: 058
     Dates: start: 20050829, end: 20060116
  4. LEUPROLIDE ACETATE [Suspect]
     Route: 058
     Dates: start: 20000426, end: 20000913

REACTIONS (1)
  - HAEMORRHAGIC CEREBRAL INFARCTION [None]
